FAERS Safety Report 4912196-3 (Version None)
Quarter: 2006Q1

REPORT INFORMATION
  Report Type: 
  Country: None (occurrence: None)
  Receive Date: 20060215
  Receipt Date: 20050920
  Transmission Date: 20060701
  Serious: No
  Sender: FDA-Public Use
  Company Number: US-GLAXOSMITHKLINE-A0575232A

PATIENT
  Age: 63 Year
  Sex: Male
  Weight: 93.2 kg

DRUGS (1)
  1. VALTREX [Suspect]
     Dosage: 2000MG PER DAY
     Route: 048

REACTIONS (1)
  - HERPES SIMPLEX [None]
